FAERS Safety Report 7880745-1 (Version None)
Quarter: 2011Q4

REPORT INFORMATION
  Report Type: 
  Country: None (occurrence: None)
  Receive Date: 20111101
  Receipt Date: 20111019
  Transmission Date: 20120403
  Serious: Yes (Congenital Anomaly)
  Sender: FDA-Public Use
  Company Number: SE-ELI_LILLY_AND_COMPANY-SE201110005659

PATIENT

DRUGS (8)
  1. IRON [Concomitant]
     Route: 064
  2. FLUOXETINE HYDROCHLORIDE [Suspect]
     Dosage: UNK, UNKNOWN
     Route: 064
  3. ALPRAZOLAM [Concomitant]
     Route: 064
  4. IRON [Concomitant]
     Route: 064
  5. FLUOXETINE HYDROCHLORIDE [Suspect]
     Dosage: UNK, UNKNOWN
     Route: 064
  6. BUSPIRON [Concomitant]
     Route: 064
  7. ALPRAZOLAM [Concomitant]
     Route: 064
  8. BUSPIRON [Concomitant]
     Route: 064

REACTIONS (2)
  - LARYNGEAL DISORDER [None]
  - MATERNAL EXPOSURE DURING PREGNANCY [None]
